FAERS Safety Report 4331547-4 (Version None)
Quarter: 2004Q1

REPORT INFORMATION
  Report Type: 
  Country: None (occurrence: None)
  Receive Date: 20040329
  Receipt Date: 20040324
  Transmission Date: 20041129
  Serious: Yes (Hospitalization)
  Sender: FDA-Public Use
  Company Number: 04-NIP00044

PATIENT
  Age: 19 Year
  Sex: Male
  Weight: 86.3 kg

DRUGS (9)
  1. NIPENT [Suspect]
     Indication: GRAFT VERSUS HOST DISEASE
     Dosage: 4 MG/M2 (Q 2 WKS), INTRAVENOUS
     Route: 042
     Dates: start: 20020117, end: 20020415
  2. PREDNISONE [Concomitant]
  3. CELLCEPT [Concomitant]
  4. PROCRIT (EPOETIN ALFA) [Concomitant]
  5. DAPSONE [Concomitant]
  6. COUMADIN [Concomitant]
  7. VIOXX (WARFARIN SODIUM) [Concomitant]
  8. MAGNESIUM OXIDE (URO MAG) [Concomitant]
  9. TEQUIN [Concomitant]

REACTIONS (4)
  - COUGH [None]
  - LUNG INFILTRATION [None]
  - PNEUMONIA ESCHERICHIA [None]
  - PYREXIA [None]
